FAERS Safety Report 11080698 (Version 3)
Quarter: 2015Q4

REPORT INFORMATION
  Report Type: Report from Study
  Country: JP (occurrence: JP)
  Receive Date: 20150501
  Receipt Date: 20151002
  Transmission Date: 20160304
  Serious: Yes (Death, Hospitalization)
  Sender: FDA-Public Use
  Company Number: JP-BAYER-2015-181144

PATIENT
  Age: 73 Year
  Sex: Male
  Weight: 62 kg

DRUGS (10)
  1. SUTENT [Concomitant]
     Active Substance: SUNITINIB MALATE
     Indication: GASTROINTESTINAL STROMAL TUMOUR
     Dosage: DAILY DOSE 50 MG
     Route: 048
     Dates: start: 20140314, end: 20140322
  2. SUTENT [Concomitant]
     Active Substance: SUNITINIB MALATE
     Indication: GASTROINTESTINAL STROMAL TUMOUR
     Dosage: DAILY DOSE 25 MG
     Route: 048
     Dates: start: 20140526
  3. UREPEARL [Concomitant]
     Active Substance: UREA
     Indication: DRUG TOXICITY PROPHYLAXIS
     Dosage: UNK
     Route: 061
     Dates: start: 20140310, end: 20141201
  4. AMLODIPINE [Concomitant]
     Active Substance: AMLODIPINE BESYLATE
     Indication: CARDIOVASCULAR EVENT PROPHYLAXIS
     Dosage: DAILY DOSE 2.5 MG
     Route: 048
     Dates: start: 20140407
  5. DERMOVATE [Concomitant]
     Active Substance: CLOBETASOL
     Indication: DRUG TOXICITY PROPHYLAXIS
     Dosage: UNK
     Route: 061
     Dates: start: 20140519, end: 20141201
  6. STIVARGA [Suspect]
     Active Substance: REGORAFENIB
     Indication: GASTROINTESTINAL STROMAL TUMOUR
     Dosage: 80 MG, QD (2 WEEKS AND OFF FOR 1 WEEK)
     Route: 048
     Dates: start: 20140811, end: 20141130
  7. GLIVEC [Concomitant]
     Active Substance: IMATINIB MESYLATE
     Indication: GASTROINTESTINAL STROMAL TUMOUR
     Dosage: DAILY DOSE 300 MG
     Route: 048
     Dates: start: 20131115
  8. GLIVEC [Concomitant]
     Active Substance: IMATINIB MESYLATE
     Indication: GASTROINTESTINAL STROMAL TUMOUR
     Dosage: DAILY DOSE 300 MG
     Route: 048
     Dates: start: 20131115
  9. SUTENT [Concomitant]
     Active Substance: SUNITINIB MALATE
     Indication: GASTROINTESTINAL STROMAL TUMOUR
     Dosage: DAILY DOSE 37.5 MG
     Route: 048
     Dates: start: 20140326
  10. GLIVEC [Concomitant]
     Active Substance: IMATINIB MESYLATE
     Indication: GASTROINTESTINAL STROMAL TUMOUR
     Dosage: DAILY DOSE 400 MG
     Route: 048
     Dates: start: 20130830

REACTIONS (2)
  - Haemorrhoids thrombosed [Recovered/Resolved]
  - Palmar-plantar erythrodysaesthesia syndrome [Recovered/Resolved]

NARRATIVE: CASE EVENT DATE: 20140814
